FAERS Safety Report 4611730-0 (Version None)
Quarter: 2005Q1

REPORT INFORMATION
  Report Type: 
  Country: None (occurrence: None)
  Receive Date: 20050317
  Receipt Date: 20040910
  Transmission Date: 20050727
  Serious: Yes (Other)
  Sender: FDA-Public Use
  Company Number: PHBS2004BR12133

PATIENT
  Age: 68 Year
  Sex: Female
  Weight: 50 kg

DRUGS (2)
  1. BROMAZEPAM [Concomitant]
     Indication: SLEEP DISORDER
  2. ZELMAC [Suspect]
     Dosage: 6 MG, BID
     Route: 048

REACTIONS (8)
  - COLITIS ULCERATIVE [None]
  - DIARRHOEA [None]
  - DIVERTICULUM INTESTINAL [None]
  - GENITAL INFECTION FEMALE [None]
  - GENITAL LESION [None]
  - HELICOBACTER INFECTION [None]
  - REPRODUCTIVE TRACT DISORDER [None]
  - SLEEP DISORDER [None]
